FAERS Safety Report 5281768-1 (Version None)
Quarter: 2007Q1

REPORT INFORMATION
  Report Type: 
  Country: None (occurrence: None)
  Receive Date: 20070330
  Receipt Date: 20070322
  Transmission Date: 20070707
  Serious: Yes (Hospitalization)
  Sender: FDA-Public Use
  Company Number: FR-GLAXOSMITHKLINE-B0463830A

PATIENT
  Age: 6 Year
  Sex: Male
  Weight: 20 kg

DRUGS (3)
  1. ZOPHREN [Suspect]
     Dosage: 4MG PER DAY
     Route: 042
     Dates: start: 20070305, end: 20070305
  2. UROMITEXAN [Suspect]
     Dosage: 720MG PER DAY
     Route: 042
     Dates: start: 20070305, end: 20070305
  3. ETOPOPHOS [Suspect]
     Dosage: 7.5MG PER DAY
     Route: 042
     Dates: start: 20070305, end: 20070305

REACTIONS (11)
  - ABDOMINAL PAIN [None]
  - BLOOD PRESSURE INCREASED [None]
  - CYANOSIS [None]
  - FACE OEDEMA [None]
  - FATIGUE [None]
  - MALAISE [None]
  - NAUSEA [None]
  - PANIC REACTION [None]
  - TACHYCARDIA [None]
  - URTICARIA [None]
  - VOMITING [None]
